FAERS Safety Report 20116410 (Version 5)
Quarter: 2022Q3

REPORT INFORMATION
  Report Type: Report from Study
  Country: IT (occurrence: None)
  Receive Date: 20211126
  Receipt Date: 20220727
  Transmission Date: 20221027
  Serious: Yes (Hospitalization)
  Sender: FDA-Public Use
  Company Number: IT-ROCHE-2897798

PATIENT
  Age: 43 Year
  Sex: Female
  Weight: 60 kg

DRUGS (10)
  1. ATEZOLIZUMAB [Suspect]
     Active Substance: ATEZOLIZUMAB
     Indication: Breast cancer
     Dosage: ON 21/JUL/2021, SHE RECEIVED LAST DOSE BEFORE SAE: 21/JUL/2021 (4800 MG)?NO. OF COURSES: 4
     Route: 041
     Dates: start: 20210518
  2. ATEZOLIZUMAB [Suspect]
     Active Substance: ATEZOLIZUMAB
     Dosage: ON 24/MAR/2021, RECEIVED THE MOST RECENT DOSE (7200 MG) PRIOR TO SAE.?COURSE: 3
     Route: 041
     Dates: start: 20201201
  3. TRASTUZUMAB [Suspect]
     Active Substance: TRASTUZUMAB
     Indication: Breast cancer
     Dosage: AT THE LOADING DOSE OF 8 MG/KG I.V. THEN 6 MG/KG I.V. ON 21/JUL/2021, SHE RECEIVED LAST DOSE BEFORE
     Route: 041
     Dates: start: 20210518
  4. TRASTUZUMAB [Suspect]
     Active Substance: TRASTUZUMAB
     Dosage: ON 24/MAR/2021, RECEIVED THE MOST RECENT DOSE (1160 MG)?NUMBER OF COURSE: 3
     Route: 042
     Dates: start: 20210202
  5. PERTUZUMAB [Suspect]
     Active Substance: PERTUZUMAB
     Indication: Breast cancer
     Dosage: AT THE LOADING DOSE OF 840 MG .V., THEN 420 MG I.V. ON 21/JUL/2021, SHE RECEIVED LAST DOSE BEFORE SA
     Route: 042
     Dates: start: 20210518
  6. PERTUZUMAB [Suspect]
     Active Substance: PERTUZUMAB
     Dosage: ON 24/MAR/2021, RECEIVED LAST DOSE PRIOR SAE. (1680 MG)?NUMBER OF COURSE 3
     Route: 042
     Dates: start: 20210202
  7. CARBOPLATIN [Suspect]
     Active Substance: CARBOPLATIN
     Indication: Breast cancer
     Dosage: AUC 2 I.V. ON DAY 1 AND DAY 8 ON 24/MAR/2021, SHE RECEIVED LAST DOSE BEFORE SAE (1496 MG)?NO. OF COU
     Route: 042
     Dates: start: 20210202, end: 20210324
  8. PACLITAXEL [Suspect]
     Active Substance: PACLITAXEL
     Indication: Breast cancer
     Dosage: 90 MG/M2 I.V.  ON 24/MAR/2021, SHE RECEIVED LAST DOSE BEFORE SAE (700 MG)?NO. OF COURSES: 3
     Route: 042
     Dates: start: 20210202, end: 20210324
  9. CYCLOPHOSPHAMIDE [Suspect]
     Active Substance: CYCLOPHOSPHAMIDE
     Indication: Breast cancer
     Dosage: ON 12/JAN/2021, SHE RECEIVED LAST DOSE BEFORE SAE (2916 MG)?NO. OF COURSES: 3
     Route: 042
     Dates: start: 20201201, end: 20210112
  10. DOXORUBICIN [Suspect]
     Active Substance: DOXORUBICIN
     Indication: Breast cancer
     Dosage: ON 12/JAN/2021, SHE RECEIVED LAST DOSE BEFORE SAE (291 MG)?NO. OF COURSES: 3
     Route: 042
     Dates: start: 20201201, end: 20210112

REACTIONS (2)
  - Aspartate aminotransferase increased [Recovered/Resolved]
  - Alanine aminotransferase increased [Recovered/Resolved]

NARRATIVE: CASE EVENT DATE: 20210823
